FAERS Safety Report 20235625 (Version 1)
Quarter: 2021Q4

REPORT INFORMATION
  Report Type: Spontaneous
  Country: US (occurrence: US)
  Receive Date: 20211228
  Receipt Date: 20211228
  Transmission Date: 20220303
  Serious: Yes (Other)
  Sender: FDA-Public Use
  Company Number: US-drreddys-LIT/USA/21/0145232

PATIENT
  Age: 52 Year
  Sex: Male

DRUGS (5)
  1. NALOXONE HYDROCHLORIDE [Suspect]
     Active Substance: NALOXONE HYDROCHLORIDE
     Indication: Drug dependence
     Route: 030
  2. NALOXONE HYDROCHLORIDE [Suspect]
     Active Substance: NALOXONE HYDROCHLORIDE
     Indication: Drug withdrawal syndrome
  3. NALTREXONE [Concomitant]
     Active Substance: NALTREXONE
     Indication: Drug dependence
     Dates: start: 201708
  4. NALTREXONE [Concomitant]
     Active Substance: NALTREXONE
     Indication: Drug withdrawal syndrome
  5. DIAMORPHINE [Concomitant]
     Active Substance: DIAMORPHINE
     Indication: Product used for unknown indication

REACTIONS (1)
  - Drug withdrawal syndrome [Unknown]
